FAERS Safety Report 26216259 (Version 1)
Quarter: 2025Q4

REPORT INFORMATION
  Report Type: Spontaneous
  Country: US (occurrence: US)
  Receive Date: 20251231
  Receipt Date: 20251231
  Transmission Date: 20260117
  Serious: Yes (Hospitalization, Other)
  Sender: CIPLA
  Company Number: US-CIPLA LTD.-2025US16565

PATIENT

DRUGS (3)
  1. BLEOMYCIN SULFATE [Suspect]
     Active Substance: BLEOMYCIN SULFATE
     Indication: Testis cancer
     Dosage: UNK
     Route: 065
  2. ETOPOSIDE [Concomitant]
     Active Substance: ETOPOSIDE
     Indication: Testis cancer
     Dosage: UNK
     Route: 065
  3. CISPLATIN [Concomitant]
     Active Substance: CISPLATIN
     Indication: Testis cancer
     Dosage: UNK
     Route: 065

REACTIONS (2)
  - Pneumonitis [Unknown]
  - Acute respiratory distress syndrome [Unknown]
